FAERS Safety Report 7374505-8 (Version None)
Quarter: 2011Q1

REPORT INFORMATION
  Report Type: 
  Country: None (occurrence: None)
  Receive Date: 20110325
  Receipt Date: 20110128
  Transmission Date: 20110831
  Serious: No
  Sender: FDA-Public Use
  Company Number: US-MYLANLABS-2011S1001981

PATIENT
  Age: 55 Year
  Sex: Male

DRUGS (12)
  1. FENTANYL-100 [Suspect]
     Indication: ARTHRALGIA
     Route: 062
     Dates: start: 20100401
  2. NIFEDIPINE [Concomitant]
     Route: 048
  3. MINOXIDIL [Concomitant]
     Route: 048
  4. DIBENZYLINE [Concomitant]
     Route: 048
  5. LOVAZA [Concomitant]
     Route: 048
  6. VICODIN [Concomitant]
     Dosage: 5/325MG TABLETS
     Route: 048
  7. ALDACTONE [Concomitant]
     Route: 048
  8. PRAVACHOL [Concomitant]
     Route: 048
  9. ASPIRIN [Concomitant]
     Route: 048
  10. ZANTAC [Concomitant]
     Route: 048
  11. PROZAC [Concomitant]
     Route: 048
  12. COLACE [Concomitant]
     Route: 048

REACTIONS (3)
  - DIZZINESS [None]
  - CONFUSIONAL STATE [None]
  - DISORIENTATION [None]
